FAERS Safety Report 4513488-2 (Version None)
Quarter: 2004Q4

REPORT INFORMATION
  Report Type: 
  Country: None (occurrence: None)
  Receive Date: 20041130
  Receipt Date: 20041101
  Transmission Date: 20050328
  Serious: Yes (Hospitalization)
  Sender: FDA-Public Use
  Company Number: 200418454US

PATIENT
  Sex: Male
  Weight: 63.6 kg

DRUGS (10)
  1. LANTUS [Suspect]
     Indication: DIABETES MELLITUS NON-INSULIN-DEPENDENT
     Dosage: DOSE UNIT: UNITS
     Route: 058
     Dates: start: 20010701
  2. PREDNISONE [Concomitant]
  3. DOXYCYCLINE [Concomitant]
  4. LEVAQUIN [Concomitant]
  5. ANTIBIOTICS [Concomitant]
     Indication: SKIN ULCER
     Dates: start: 20040601
  6. PHENERGAN [Concomitant]
  7. MIDODRINE HCL [Concomitant]
     Indication: ORTHOSTATIC HYPOTENSION
  8. TRENTAL [Concomitant]
  9. ACYCLOVIR [Concomitant]
  10. FLORINEF [Concomitant]

REACTIONS (5)
  - BLOOD GLUCOSE DECREASED [None]
  - BLOOD GLUCOSE INCREASED [None]
  - GASTRIC DISORDER [None]
  - SHOCK HYPOGLYCAEMIC [None]
  - VOMITING [None]
